FAERS Safety Report 4631653-0 (Version None)
Quarter: 2005Q2

REPORT INFORMATION
  Report Type: 
  Country: None (occurrence: None)
  Receive Date: 20050407
  Receipt Date: 20050325
  Transmission Date: 20051028
  Serious: Yes (Hospitalization, Other)
  Sender: FDA-Public Use
  Company Number: 2005RL000034

PATIENT
  Age: 78 Year
  Sex: Female

DRUGS (4)
  1. PROPAFENONE HYDROCHLORIDE [Suspect]
     Indication: ATRIAL FIBRILLATION
     Dosage: 150 MG; BID; PO
     Route: 048
     Dates: start: 20050317
  2. COMBIRON (BEING QUERIED) [Suspect]
     Indication: ANAEMIA
     Dosage: PO
     Route: 048
  3. OSYROL-LASIX [Concomitant]
  4. COUMADIN [Concomitant]

REACTIONS (7)
  - ACUTE PULMONARY OEDEMA [None]
  - CARDIAC ARREST [None]
  - DRUG INEFFECTIVE [None]
  - NAUSEA [None]
  - PNEUMONIA [None]
  - RESPIRATORY FAILURE [None]
  - VOMITING [None]
